FAERS Safety Report 9564202 (Version 1)
Quarter: 2013Q3

REPORT INFORMATION
  Report Type: Spontaneous
  Country: AU (occurrence: AU)
  Receive Date: 20130930
  Receipt Date: 20130930
  Transmission Date: 20140515
  Serious: Yes (Hospitalization)
  Sender: FDA-Public Use
  Company Number: AU-AMGEN-AUSSP2013067097

PATIENT
  Age: 69 Year
  Sex: 0
  Weight: 87 kg

DRUGS (10)
  1. XGEVA [Suspect]
     Indication: PROSTATE CANCER METASTATIC
     Dosage: 180 MG, Q6WK
     Route: 058
     Dates: start: 20130412, end: 20130705
  2. MICARDIS [Concomitant]
     Dosage: 40 MG, QD
  3. SOTALOL [Concomitant]
     Dosage: 80 MG, BID
  4. VYTORIN [Concomitant]
     Dosage: 10/40, QD
  5. TARGIN [Concomitant]
     Dosage: 60 MG (10/20MG), BID
  6. PREDNISOLONE [Concomitant]
     Dosage: 5 MG, QD
     Dates: end: 20130710
  7. CALCIUM [Concomitant]
  8. COLECALCIFEROL [Concomitant]
  9. DOCETAXEL [Concomitant]
  10. PANAFCORTELONE [Concomitant]

REACTIONS (5)
  - Dysgeusia [Unknown]
  - Weight decreased [Unknown]
  - Asthenia [Unknown]
  - Blood calcium decreased [Unknown]
  - Blood phosphorus decreased [Unknown]
